FAERS Safety Report 12676823 (Version 2)
Quarter: 2016Q3

REPORT INFORMATION
  Report Type: Spontaneous
  Country: US (occurrence: US)
  Receive Date: 20160823
  Receipt Date: 20160930
  Transmission Date: 20161109
  Serious: Yes (Hospitalization)
  Sender: FDA-Public Use
  Company Number: US-BAYER-2016-162303

PATIENT
  Age: 58 Year
  Sex: Female
  Weight: 98 kg

DRUGS (19)
  1. DURAGESIC [Suspect]
     Active Substance: FENTANYL
     Indication: PAIN
     Dosage: 12 MCG/HR, 1 PATCH TRANSDERMAL 872 HRS
  2. FERROUS SULFATE. [Concomitant]
     Active Substance: FERROUS SULFATE
     Indication: ANAEMIA
     Dosage: 1 DF, QD
     Route: 048
  3. PANTOPRAZOLE [Concomitant]
     Active Substance: PANTOPRAZOLE SODIUM
     Indication: OESOPHAGITIS
     Dosage: 40 MG, QD
     Route: 048
  4. DILAUDID [Suspect]
     Active Substance: HYDROMORPHONE HYDROCHLORIDE
     Indication: PAIN
     Dosage: 2 MG, EVERY (Q) 4-6 HOURS AS NEEDED PRN
     Route: 048
  5. CARAFATE [Concomitant]
     Active Substance: SUCRALFATE
     Indication: HERNIA
     Dosage: 10 ML, Q 6 HR
     Route: 048
  6. PREGABALIN. [Concomitant]
     Active Substance: PREGABALIN
     Indication: PAIN
     Dosage: 300 MG, QD
     Route: 048
  7. MIRALAX [Suspect]
     Active Substance: POLYETHYLENE GLYCOL 3350
     Indication: CONSTIPATION
     Dosage: 17 G, QD AS NEEDED
     Route: 048
     Dates: start: 20160721
  8. ONDANSETRON [Concomitant]
     Active Substance: ONDANSETRON
     Indication: PROPHYLAXIS OF NAUSEA AND VOMITING
     Dosage: 8 MG, Q8HR AS NEEDED
     Route: 048
     Dates: start: 20160719
  9. CELECOXIB. [Concomitant]
     Active Substance: CELECOXIB
     Indication: PAIN
     Dosage: 200 MG, QD
     Route: 048
  10. SENNA [Concomitant]
     Active Substance: SENNA LEAF\SENNOSIDES\SENNOSIDES A AND B
     Indication: CONSTIPATION
     Dosage: 8.6 MG, BID
     Route: 048
     Dates: start: 20160725
  11. NOSTRIL [PHENYLEPHRINE HYDROCHLORIDE] [Concomitant]
     Indication: RHINITIS ALLERGIC
     Dosage: TWICE DAILY (BID)
  12. LOSARTAN. [Concomitant]
     Active Substance: LOSARTAN
     Indication: HYPERTENSION
     Dosage: 50 MG, QD
     Route: 048
     Dates: end: 20160801
  13. COMPAZINE [Concomitant]
     Active Substance: PROCHLORPERAZINE MALEATE
     Indication: PROPHYLAXIS OF NAUSEA AND VOMITING
     Dosage: 10 MG, 6 HOURS AS NEEDED
     Route: 048
     Dates: start: 20160719
  14. CETIRIZINE [Concomitant]
     Active Substance: CETIRIZINE HYDROCHLORIDE
     Indication: RHINITIS ALLERGIC
     Dosage: 10 MG, QD
     Route: 048
  15. HYDROCHLOROTHIAZIDE. [Concomitant]
     Active Substance: HYDROCHLOROTHIAZIDE
     Indication: HYPERTENSION
     Dosage: 25 MG, QD
     Route: 048
     Dates: end: 20160801
  16. KLONOPIN [Suspect]
     Active Substance: CLONAZEPAM
     Indication: ANXIETY
     Dosage: 10 MG, QD
     Dates: start: 20151215, end: 20160731
  17. FLONASE [Concomitant]
     Active Substance: FLUTICASONE PROPIONATE
     Indication: RHINITIS ALLERGIC
     Dosage: 1 PUFF(S), UNK
  18. PYRIDOXINE [Concomitant]
     Active Substance: PYRIDOXINE
     Dosage: 5 MG, QD
     Route: 048
  19. MACROBID [Concomitant]
     Active Substance: NITROFURANTOIN\NITROFURANTOIN MONOHYDRATE
     Indication: URINARY TRACT INFECTION
     Dosage: 100 MG, BID
     Route: 048
     Dates: start: 20160722, end: 20160729

REACTIONS (3)
  - Head injury [None]
  - Urinary tract infection [None]
  - Hypotension [Recovered/Resolved]

NARRATIVE: CASE EVENT DATE: 2016
